FAERS Safety Report 6541993-6 (Version None)
Quarter: 2010Q1

REPORT INFORMATION
  Report Type: 
  Country: None (occurrence: None)
  Receive Date: 20100119
  Receipt Date: 20091231
  Transmission Date: 20100710
  Serious: Yes (Life-Threatening, Hospitalization)
  Sender: FDA-Public Use
  Company Number: US-ROCHE-509052

PATIENT
  Sex: Female
  Weight: 63 kg

DRUGS (30)
  1. BEVACIZUMAB [Suspect]
     Indication: COLORECTAL CANCER
     Dosage: 5 MG, BID
     Route: 042
     Dates: start: 20060530, end: 20061226
  2. BEVACIZUMAB [Suspect]
     Dosage: 5 MG, BID
     Route: 042
     Dates: start: 20060530, end: 20061226
  3. AG-013736 [Suspect]
     Indication: COLORECTAL CANCER
     Dosage: 5 MG, BID
     Route: 048
     Dates: start: 20060531, end: 20070108
  4. AG-013736 [Suspect]
     Dosage: 5 MG, BID
     Route: 048
     Dates: start: 20060531, end: 20060928
  5. 5-FU [Suspect]
     Indication: COLORECTAL CANCER
     Dosage: 3024 MG, QOW
     Route: 042
     Dates: start: 20060530, end: 20061228
  6. 5-FU [Suspect]
     Dosage: 3024 MG, QOW
     Route: 042
     Dates: start: 20060530, end: 20061228
  7. OXALIPLATIN [Suspect]
     Indication: COLORECTAL CANCER
     Dosage: 142.8 MG, QOW
     Route: 042
     Dates: start: 20060530, end: 20061226
  8. OXALIPLATIN [Suspect]
     Dosage: 142.8 MG, QOW
     Route: 042
     Dates: start: 20060530, end: 20061226
  9. LEUCOVORIN CALCIUM [Suspect]
     Indication: COLORECTAL CANCER
     Dosage: 704 MG, SINGLE
     Route: 042
     Dates: start: 20060530, end: 20061226
  10. LEUCOVORIN CALCIUM [Suspect]
     Dosage: 704 MG, SINGLE
     Route: 042
     Dates: start: 20060530, end: 20061226
  11. LEUCOVORIN CALCIUM [Suspect]
     Dosage: 504 MG, SINGLE
     Route: 042
     Dates: start: 20060828, end: 20060828
  12. LEUCOVORIN CALCIUM [Suspect]
     Dosage: 504 MG, SINGLE
     Route: 042
     Dates: start: 20060828, end: 20060828
  13. LEUCOVORIN CALCIUM [Suspect]
     Dosage: 519 MG, SINGLE
     Route: 042
     Dates: start: 20060717, end: 20060717
  14. LEUCOVORIN CALCIUM [Suspect]
     Dosage: 519 MG, SINGLE
     Route: 042
     Dates: start: 20060717, end: 20060717
  15. LEUCOVORIN CALCIUM [Suspect]
     Dosage: 513 MG, SINGLE
     Route: 042
     Dates: start: 20060814, end: 20060814
  16. LEUCOVORIN CALCIUM [Suspect]
     Dosage: 513 MG, SINGLE
     Route: 042
     Dates: start: 20060814, end: 20060814
  17. LEUCOVORIN CALCIUM [Suspect]
     Dosage: 504 MG, SINGLE
     Route: 042
     Dates: start: 20060918, end: 20060918
  18. LEUCOVORIN CALCIUM [Suspect]
     Dosage: 504 MG, SINGLE
     Route: 042
     Dates: start: 20060918, end: 20060918
  19. LEUCOVORIN CALCIUM [Suspect]
     Dosage: 684 MG, SINGLE
     Route: 042
     Dates: start: 20060703, end: 20060703
  20. LEUCOVORIN CALCIUM [Suspect]
     Dosage: 684 MG, SINGLE
     Route: 042
     Dates: start: 20060703, end: 20060703
  21. LEUCOVORIN CALCIUM [Suspect]
     Dosage: 696 MG, SINGLE
     Route: 042
     Dates: start: 20060620, end: 20060620
  22. LEUCOVORIN CALCIUM [Suspect]
     Dosage: 696 MG, SINGLE
     Route: 042
     Dates: start: 20060620, end: 20060620
  23. LISINOPRIL [Concomitant]
     Indication: DRUG USE FOR UNKNOWN INDICATION
     Route: 048
     Dates: start: 20060101
  24. METFORMIN HCL [Concomitant]
     Indication: DRUG USE FOR UNKNOWN INDICATION
     Dosage: UNK
     Route: 048
     Dates: start: 20060717, end: 20060921
  25. PROTONIX [Concomitant]
     Indication: DRUG USE FOR UNKNOWN INDICATION
     Route: 048
     Dates: start: 20060717
  26. ASPIRIN [Concomitant]
     Indication: DRUG USE FOR UNKNOWN INDICATION
     Route: 048
     Dates: start: 20060719
  27. NORVASC [Concomitant]
     Indication: DRUG USE FOR UNKNOWN INDICATION
     Dosage: UNK
     Route: 048
     Dates: start: 20060613, end: 20060911
  28. XANAX [Concomitant]
     Indication: DRUG USE FOR UNKNOWN INDICATION
     Dosage: UNK
     Dates: start: 20040504
  29. COMPAZINE [Concomitant]
     Indication: DRUG USE FOR UNKNOWN INDICATION
     Dosage: UNK
     Dates: start: 20060531
  30. METOPROLOL [Concomitant]
     Indication: DRUG USE FOR UNKNOWN INDICATION
     Dosage: UNK
     Dates: start: 20060610, end: 20060911

REACTIONS (4)
  - ACIDOSIS [None]
  - HEPATIC ENZYME INCREASED [None]
  - LIVER FUNCTION TEST ABNORMAL [None]
  - RESPIRATORY FAILURE [None]
